FAERS Safety Report 5711063-5 (Version None)
Quarter: 2008Q2

REPORT INFORMATION
  Report Type: 
  Country: None (occurrence: None)
  Receive Date: 20080421
  Receipt Date: 20080407
  Transmission Date: 20081010
  Serious: Yes (Other)
  Sender: FDA-Public Use
  Company Number: SE-AMGEN-UK272145

PATIENT
  Sex: Male

DRUGS (10)
  1. ARANESP [Suspect]
     Indication: DIALYSIS
     Route: 065
     Dates: start: 20070219, end: 20071102
  2. ARANESP [Suspect]
     Route: 042
     Dates: start: 20070808, end: 20071029
  3. ARANESP [Suspect]
     Route: 042
     Dates: start: 20071029, end: 20071102
  4. PLENDIL [Concomitant]
     Route: 048
  5. ACETAMINOPHEN [Concomitant]
     Route: 048
  6. RENAGEL [Concomitant]
     Route: 048
  7. ENALAPRIL MALEATE [Concomitant]
     Route: 048
  8. DOXAZOSIN MESYLATE [Concomitant]
     Route: 048
  9. LONITEN [Concomitant]
     Route: 048
  10. VENOFER [Concomitant]
     Route: 042

REACTIONS (1)
  - THERAPEUTIC RESPONSE DECREASED [None]
